FAERS Safety Report 20547276 (Version 2)
Quarter: 2022Q1

REPORT INFORMATION
  Report Type: Spontaneous
  Country: MX (occurrence: MX)
  Receive Date: 20220303
  Receipt Date: 20220322
  Transmission Date: 20220424
  Serious: Yes (Hospitalization)
  Sender: FDA-Public Use
  Company Number: MX-BAYER-2022A031779

PATIENT
  Age: 43 Year
  Sex: Female

DRUGS (2)
  1. ADEMPAS [Suspect]
     Active Substance: RIOCIGUAT
     Dosage: 1 MG, Q8HR
     Dates: start: 202112
  2. OXYGEN [Concomitant]
     Active Substance: OXYGEN
     Dosage: 7 L
     Dates: start: 2017

REACTIONS (1)
  - Pulmonary thrombosis [Recovering/Resolving]

NARRATIVE: CASE EVENT DATE: 20211201
